FAERS Safety Report 5917906-4 (Version None)
Quarter: 2008Q4

REPORT INFORMATION
  Report Type: 
  Country: None (occurrence: None)
  Receive Date: 20081014
  Receipt Date: 20080808
  Transmission Date: 20090506
  Serious: No
  Sender: FDA-Public Use
  Company Number: US-ABBOTT-08P-163-0463776-00

PATIENT
  Age: 22 Year
  Sex: Female

DRUGS (5)
  1. KALETRA [Suspect]
     Indication: ANTIRETROVIRAL THERAPY
     Dosage: 2 DF TWICE DAILY
     Route: 048
     Dates: start: 20071003
  2. LAMIVUDINE + ZIDOVUDINE [Suspect]
     Indication: ANTIRETROVIRAL THERAPY
     Route: 048
     Dates: start: 20071003
  3. ZIDOVUDINE [Suspect]
     Indication: ANTIRETROVIRAL THERAPY
     Route: 042
     Dates: start: 20080228, end: 20080228
  4. ZIDOVUDINE [Suspect]
     Route: 042
     Dates: start: 20080228, end: 20080228
  5. NITROFURANTOIN [Concomitant]
     Indication: DRUG USE FOR UNKNOWN INDICATION

REACTIONS (3)
  - PREMATURE RUPTURE OF MEMBRANES [None]
  - STREPTOCOCCAL IDENTIFICATION TEST POSITIVE [None]
  - URINARY TRACT INFECTION [None]
